FAERS Safety Report 5430355-0 (Version None)
Quarter: 2007Q3

REPORT INFORMATION
  Report Type: 
  Country: None (occurrence: None)
  Receive Date: 20070828
  Receipt Date: 20070821
  Transmission Date: 20080115
  Serious: Yes (Hospitalization)
  Sender: FDA-Public Use
  Company Number: 163-21880-07040788

PATIENT
  Age: 78 Year
  Sex: Female

DRUGS (9)
  1. REVLIMID [Suspect]
     Indication: MULTIPLE MYELOMA
     Dosage: 25 MG, 1 IN 1 D, ORAL
     Route: 048
     Dates: start: 20070323, end: 20070402
  2. DECADRON [Suspect]
     Indication: DRUG USE FOR UNKNOWN INDICATION
     Dosage: 4 MG, QD X 4 DAYS, ORAL
     Route: 048
     Dates: start: 20070323, end: 20070326
  3. DURAGESIC (FENTANYL) (POULTICE OR PATCH) [Concomitant]
  4. LASIX [Concomitant]
  5. LOPRESSOR [Concomitant]
  6. PROTONIX [Concomitant]
  7. NORVASC [Concomitant]
  8. COUMADIN [Concomitant]
  9. PERCOCET [Concomitant]

REACTIONS (8)
  - ARRHYTHMIA [None]
  - BLOOD CALCIUM DECREASED [None]
  - BLOOD CHLORIDE INCREASED [None]
  - BLOOD SODIUM DECREASED [None]
  - DEHYDRATION [None]
  - GASTROENTERITIS VIRAL [None]
  - HYPOKALAEMIA [None]
  - INFLUENZA [None]
